FAERS Safety Report 24048468 (Version 1)
Quarter: 2024Q3

REPORT INFORMATION
  Report Type: Spontaneous
  Country: BR (occurrence: BR)
  Receive Date: 20240704
  Receipt Date: 20240704
  Transmission Date: 20241016
  Serious: Yes (Death, Hospitalization, Other)
  Sender: NOVO NORDISK
  Company Number: BR-NOVOPROD-1247424

PATIENT
  Sex: Male

DRUGS (1)
  1. RYBELSUS [Suspect]
     Active Substance: SEMAGLUTIDE
     Indication: Product used for unknown indication
     Dosage: 3 MG, QD

REACTIONS (4)
  - Respiratory arrest [Fatal]
  - Muscular weakness [Unknown]
  - Diaphragmatic paralysis [Unknown]
  - Respiratory arrest [Unknown]
